FAERS Safety Report 10767466 (Version 1)
Quarter: 2015Q1

REPORT INFORMATION
  Report Type: Spontaneous
  Country: US (occurrence: US)
  Receive Date: 20150205
  Receipt Date: 20150205
  Transmission Date: 20150721
  Serious: No
  Sender: FDA-Public Use
  Company Number: US-ELI_LILLY_AND_COMPANY-US201501008507

PATIENT
  Age: 76 Year
  Sex: Female

DRUGS (7)
  1. HUMALOG [Suspect]
     Active Substance: INSULIN LISPRO
     Dosage: UNK, PRN
     Route: 065
     Dates: start: 201407
  2. GABAPENTIN. [Concomitant]
     Active Substance: GABAPENTIN
     Dosage: UNK
  3. METOPROLOL TARTRATE. [Concomitant]
     Active Substance: METOPROLOL TARTRATE
     Dosage: 50 MG, BID
  4. GLIPIZIDE. [Concomitant]
     Active Substance: GLIPIZIDE
     Dosage: 10 MG, BID
  5. HUMALOG [Suspect]
     Active Substance: INSULIN LISPRO
     Indication: TYPE 2 DIABETES MELLITUS
     Dosage: 13 U, EACH MORNING
     Route: 065
     Dates: start: 201407
  6. NIFEDICAL [Concomitant]
     Dosage: 30 MG, UNKNOWN
  7. FUROSEMIDE. [Concomitant]
     Active Substance: FUROSEMIDE
     Dosage: 20 MG, BID

REACTIONS (9)
  - Dysphagia [Unknown]
  - Hypersensitivity [Unknown]
  - Visual acuity reduced [Unknown]
  - Underdose [Unknown]
  - Injury associated with device [Unknown]
  - Blood glucose increased [Recovered/Resolved]
  - Nasal congestion [Unknown]
  - Rash pruritic [Unknown]
  - Injection site pain [Unknown]

NARRATIVE: CASE EVENT DATE: 201412
